FAERS Safety Report 16730088 (Version 1)
Quarter: 2019Q3

REPORT INFORMATION
  Report Type: Report from Study
  Country: US (occurrence: US)
  Receive Date: 20190822
  Receipt Date: 20190822
  Transmission Date: 20191005
  Serious: Yes (Hospitalization)
  Sender: FDA-Public Use
  Company Number: US-PACIRA-201400060

PATIENT
  Age: 53 Year
  Sex: Male
  Weight: 96.2 kg

DRUGS (3)
  1. DEPOCYT [Suspect]
     Active Substance: CYTARABINE
     Indication: ACUTE LYMPHOCYTIC LEUKAEMIA
  2. PEG/L-ASPARAGINASE [Suspect]
     Active Substance: PEGASPARGASE
     Indication: ACUTE LYMPHOCYTIC LEUKAEMIA
     Dosage: 2250 UNITS, 1X, FREQUENCY : 1X
     Route: 042
     Dates: start: 20140424, end: 20140424
  3. DEPOCYT [Suspect]
     Active Substance: CYTARABINE
     Indication: ACUTE LYMPHOCYTIC LEUKAEMIA
     Dosage: ON DAY 1 (09APR14) AND 15 (23APR14) DURING CYCLE 1. DOSE PER PROTOCOL: 25 MG, FREQUENCY : 2X
     Route: 037
     Dates: start: 20140409

REACTIONS (1)
  - Transaminases increased [Not Recovered/Not Resolved]

NARRATIVE: CASE EVENT DATE: 20140501
